FAERS Safety Report 5131068-5 (Version None)
Quarter: 2006Q3

REPORT INFORMATION
  Report Type: 
  Country: None (occurrence: None)
  Receive Date: 20060829
  Receipt Date: 20060525
  Transmission Date: 20061208
  Serious: No
  Sender: FDA-Public Use
  Company Number: S06-USA-01949-01

PATIENT
  Age: 35 Year
  Sex: Female

DRUGS (3)
  1. CAMPRAL [Suspect]
     Indication: ALCOHOLISM
     Dosage: 666 MG TID PO
     Route: 048
  2. NALTREXONE [Suspect]
     Indication: DRUG USE FOR UNKNOWN INDICATION
  3. MULTIPLE MEDICATION (NOS) [Concomitant]

REACTIONS (1)
  - ABDOMINAL DISCOMFORT [None]
